FAERS Safety Report 7746489-1 (Version None)
Quarter: 2011Q3

REPORT INFORMATION
  Report Type: 
  Country: None (occurrence: None)
  Receive Date: 20110913
  Receipt Date: 20110825
  Transmission Date: 20111222
  Serious: No
  Sender: FDA-Public Use
  Company Number: US-BAYER-2011-081725

PATIENT
  Sex: Female

DRUGS (3)
  1. POTASSIUM CHLORIDE [Concomitant]
     Dosage: UNK
     Dates: start: 20110719
  2. SOLVENTS AND DILUT. AGENTS,INCL IRRIGAT SOLUT [Concomitant]
     Dosage: UNK
     Dates: start: 20110719
  3. ALEVE (CAPLET) [Suspect]
     Dosage: UNK
     Dates: start: 20110719

REACTIONS (1)
  - NO ADVERSE EVENT [None]
